FAERS Safety Report 8798951 (Version 1)
Quarter: 2012Q4

REPORT INFORMATION
  Report Type: 
  Country: KR (occurrence: KR)
  Receive Date: 20120920
  Receipt Date: 20120920
  Transmission Date: 20130627
  Serious: Yes (Hospitalization)
  Sender: FDA-Public Use
  Company Number: KR-ELI_LILLY_AND_COMPANY-KR201209003699

PATIENT
  Sex: Male

DRUGS (2)
  1. HUMALOG 50% LISPRO, 50% NPL [Suspect]
     Dosage: UNK UNK, bid
     Route: 058
     Dates: start: 20120803
  2. HUMALOG 50% LISPRO, 50% NPL [Suspect]
     Dosage: UNK, bid

REACTIONS (1)
  - Hyperglycaemia [Not Recovered/Not Resolved]
